FAERS Safety Report 9850792 (Version 1)
Quarter: 2013Q4

REPORT INFORMATION
  Report Type: Spontaneous
  Country: US (occurrence: None)
  Receive Date: 20131226
  Receipt Date: 20131226
  Transmission Date: 20140711
  Serious: Yes (Other)
  Sender: FDA-Public Use
  Company Number: PHEH2012US013128

PATIENT
  Age: 64 Year
  Sex: Male

DRUGS (1)
  1. AFINITOR (RAD) UNKNOWN [Suspect]
     Indication: NEOPLASM MALIGNANT
     Route: 048

REACTIONS (3)
  - Metastases to lung [None]
  - Haematuria [None]
  - Micturition frequency decreased [None]
